FAERS Safety Report 9263532 (Version 1)
Quarter: 2013Q2

REPORT INFORMATION
  Report Type: Spontaneous
  Country: US (occurrence: None)
  Receive Date: 20130429
  Receipt Date: 20130429
  Transmission Date: 20140414
  Serious: Yes (Life-Threatening)
  Sender: FDA-Public Use
  Company Number: None

PATIENT
  Age: 54 Year
  Sex: Female
  Weight: 63.05 kg

DRUGS (1)
  1. LOTREL [Suspect]
     Indication: HYPERTENSION
     Route: 048
     Dates: start: 20101123

REACTIONS (6)
  - Laryngeal oedema [None]
  - Respiratory arrest [None]
  - Convulsion [None]
  - Cerebrovascular accident [None]
  - Postictal state [None]
  - Swollen tongue [None]
